FAERS Safety Report 6223207-X (Version None)
Quarter: 2009Q2

REPORT INFORMATION
  Report Type: 
  Country: None (occurrence: None)
  Receive Date: 20090609
  Receipt Date: 20090526
  Transmission Date: 20091009
  Serious: Yes (Other)
  Sender: FDA-Public Use
  Company Number: 2009EU001829

PATIENT
  Sex: Female
  Weight: 71.4 kg

DRUGS (7)
  1. PROGRAF [Suspect]
     Indication: RENAL TRANSPLANT
     Dosage: 3 MG, BID, ORAL
     Route: 048
     Dates: start: 20081211
  2. PREDNISOLONE [Concomitant]
  3. LANSOPRAZOLE [Concomitant]
  4. AMODIPIN (AMLODIPINE) [Concomitant]
  5. CALCIDOL (VITAMINS NOS) [Concomitant]
  6. DOXAZOSIN MESYLATE [Concomitant]
  7. ATENOLOL [Concomitant]

REACTIONS (3)
  - CATARACT [None]
  - LEUKOPENIA [None]
  - NEUTROPENIA [None]
